FAERS Safety Report 7814028 (Version 4)
Quarter: 2013Q2

REPORT INFORMATION
  Report Type: Spontaneous
  Country: US (occurrence: US)
  Receive Date: 20110216
  Receipt Date: 20130610
  Transmission Date: 20140414
  Serious: Yes (Hospitalization, Other)
  Sender: FDA-Public Use
  Company Number: US-BAYER-2011-013896

PATIENT
  Age: 41 Year
  Sex: Female
  Weight: 58.96 kg

DRUGS (15)
  1. YASMIN [Suspect]
     Indication: CONTRACEPTION
     Dosage: UNK
     Route: 048
     Dates: start: 2005, end: 2009
  2. OCELLA [Suspect]
     Dosage: UNK
     Route: 048
     Dates: start: 200808, end: 200809
  3. VERAMYST [Concomitant]
     Dosage: 27.5 UNK, UNK
     Route: 045
     Dates: start: 200812
  4. FLUCONAZOLE [Concomitant]
     Dosage: 150 MG, UNK
     Dates: start: 200812
  5. LEVAQUIN [Concomitant]
     Dosage: 500 MG, UNK
     Dates: start: 200812
  6. AUGMENTIN [Concomitant]
     Dosage: UNK
     Dates: start: 200812
  7. AZITHROMYCIN [Concomitant]
     Dosage: UNK
     Dates: start: 2004, end: 2010
  8. CIPROFLOXACIN [Concomitant]
     Dosage: UNK
     Dates: start: 2004, end: 2010
  9. NITROFURANTOIN [Concomitant]
     Dosage: UNK
     Dates: start: 2004, end: 2010
  10. ERYTHROMYCIN [Concomitant]
     Dosage: UNK
     Dates: start: 2004, end: 2010
  11. CEPHALEXIN [Concomitant]
     Dosage: UNK
     Dates: start: 2004, end: 2010
  12. NEXIUM [Concomitant]
  13. DILAUDID [Concomitant]
  14. PHENERGAN [Concomitant]
  15. NEBIVOLOL HYDROCHLORIDE [Concomitant]

REACTIONS (6)
  - Gallbladder cholesterolosis [None]
  - Thrombophlebitis superficial [None]
  - Pancreatitis [None]
  - Gallbladder injury [None]
  - Pain [None]
  - Cholecystitis chronic [None]
